FAERS Safety Report 5945360-5 (Version None)
Quarter: 2008Q4

REPORT INFORMATION
  Report Type: 
  Country: None (occurrence: None)
  Receive Date: 20081107
  Receipt Date: 20081029
  Transmission Date: 20090506
  Serious: Yes (Death, Other)
  Sender: FDA-Public Use
  Company Number: JP-ABBOTT-08P-087-0485918-00

PATIENT
  Age: 79 Year
  Sex: Male

DRUGS (3)
  1. LEUPROLIDE ACETATE [Suspect]
     Indication: PROSTATE CANCER
     Route: 058
     Dates: start: 20060816, end: 20071107
  2. ESTRAMUSTINE PHOSPHATE SODIUM [Concomitant]
     Indication: PROSTATE CANCER
     Route: 048
     Dates: start: 20060816, end: 20061108
  3. DEXAMETHASONE [Concomitant]
     Indication: PROSTATE CANCER
     Route: 048
     Dates: start: 20061227, end: 20071107

REACTIONS (3)
  - CARDIAC FAILURE [None]
  - PROSTATIC SPECIFIC ANTIGEN INCREASED [None]
  - SKIN ULCER [None]
